FAERS Safety Report 8923974 (Version 3)
Quarter: 2013Q3

REPORT INFORMATION
  Report Type: Spontaneous
  Country: US (occurrence: US)
  Receive Date: 20121126
  Receipt Date: 20130925
  Transmission Date: 20140515
  Serious: Yes (Hospitalization, Disabling)
  Sender: FDA-Public Use
  Company Number: US-BAYER-2012-121474

PATIENT
  Age: 20 Year
  Sex: Female
  Weight: 70.3 kg

DRUGS (5)
  1. YAZ [Suspect]
     Dosage: UNK
     Dates: start: 20061101, end: 200904
  2. VENTOLINE [Concomitant]
  3. SINGULAIR [Concomitant]
     Dosage: 10 MG, UNK
  4. LORATADINE [Concomitant]
     Dosage: 10 MG, UNK
  5. ASMANEX [Concomitant]
     Dosage: 20 ?G, UNK

REACTIONS (10)
  - Cerebrovascular accident [None]
  - Cerebral thrombosis [None]
  - Hemiplegia [None]
  - Injury [None]
  - Pain [None]
  - General physical health deterioration [None]
  - Anxiety [None]
  - Anhedonia [None]
  - Emotional distress [None]
  - Pain [None]
